FAERS Safety Report 9841474 (Version 1)
Quarter: 2013Q4

REPORT INFORMATION
  Report Type: Spontaneous
  Country: US (occurrence: None)
  Receive Date: 20131212
  Receipt Date: 20131212
  Transmission Date: 20140711
  Serious: Yes (Other)
  Sender: FDA-Public Use
  Company Number: GAM-189-12-US

PATIENT
  Age: 75 Year
  Sex: Female

DRUGS (1)
  1. IMMUNE GLOBULIN [Suspect]

REACTIONS (1)
  - Headache [None]
